FAERS Safety Report 10634104 (Version 1)
Quarter: 2014Q4

REPORT INFORMATION
  Report Type: Spontaneous
  Country: US (occurrence: None)
  Receive Date: 20141203
  Receipt Date: 20141203
  Transmission Date: 20150529
  Serious: Yes (Life-Threatening, Disabling, Other)
  Sender: FDA-Public Use
  Company Number: None

PATIENT
  Sex: Female
  Weight: 73.6 kg

DRUGS (4)
  1. FORTEO [Suspect]
     Active Substance: TERIPARATIDE
     Indication: BONE DISORDER
     Dosage: 20 MCG?NDC#00002-8400-01?QD ?SUBQ
     Dates: start: 201204, end: 201404
  2. PROLIA [Suspect]
     Active Substance: DENOSUMAB
     Indication: BONE DISORDER
     Dosage: 60MG ?NDC#55513-0710-01?Q6 MONTHS?SUBQ
  3. FORTEO [Suspect]
     Active Substance: TERIPARATIDE
     Indication: CHONDROPATHY
     Dosage: 20 MCG?NDC#00002-8400-01?QD ?SUBQ
     Dates: start: 201204, end: 201404
  4. PROLIA [Suspect]
     Active Substance: DENOSUMAB
     Indication: CHONDROPATHY
     Dosage: 60MG ?NDC#55513-0710-01?Q6 MONTHS?SUBQ

REACTIONS (1)
  - Renal cancer [None]
